FAERS Safety Report 6536425-8 (Version None)
Quarter: 2010Q1

REPORT INFORMATION
  Report Type: 
  Country: None (occurrence: None)
  Receive Date: 20100113
  Receipt Date: 20100105
  Transmission Date: 20100710
  Serious: Yes (Hospitalization)
  Sender: FDA-Public Use
  Company Number: GXKR2010US00488

PATIENT
  Age: 60 Year
  Sex: Female

DRUGS (3)
  1. DEXTROPROPOXYPHENE (NGX) [Suspect]
     Route: 048
  2. HYDROCODONE BITARTRATE AND ACETAMINOPHEN [Interacting]
     Route: 048
  3. DEXTROMETHORPHAN [Interacting]
     Indication: UPPER RESPIRATORY TRACT INFECTION
     Dosage: HIGHER THAN RECOMMENDED DOSE
     Route: 048

REACTIONS (11)
  - AGGRESSION [None]
  - AGITATION [None]
  - AMNESIA [None]
  - CONFUSIONAL STATE [None]
  - DELIRIUM [None]
  - DELUSION [None]
  - DRUG INTERACTION [None]
  - HALLUCINATION, AUDITORY [None]
  - HALLUCINATION, OLFACTORY [None]
  - PSYCHOTIC DISORDER [None]
  - THINKING ABNORMAL [None]
